FAERS Safety Report 4750922-7 (Version None)
Quarter: 2005Q3

REPORT INFORMATION
  Report Type: 
  Country: None (occurrence: None)
  Receive Date: 20050818
  Receipt Date: 20050805
  Transmission Date: 20060218
  Serious: Yes (Other)
  Sender: FDA-Public Use
  Company Number: 2005P1000157

PATIENT
  Age: 9 Year
  Sex: Female

DRUGS (1)
  1. TENEX [Suspect]
     Indication: TOURETTE'S DISORDER
     Dosage: 1 MG

REACTIONS (1)
  - DYSURIA [None]
